FAERS Safety Report 12511525 (Version 2)
Quarter: 2016Q3

REPORT INFORMATION
  Report Type: Report from Study
  Country: US (occurrence: US)
  Receive Date: 20160629
  Receipt Date: 20160729
  Transmission Date: 20161109
  Serious: Yes (Hospitalization)
  Sender: FDA-Public Use
  Company Number: US-ROCHE-1432050

PATIENT
  Age: 61 Year
  Sex: Male
  Weight: 91.9 kg

DRUGS (14)
  1. LEVOTHYROXINE. [Concomitant]
     Active Substance: LEVOTHYROXINE
     Indication: HYPOTHYROIDISM
     Route: 048
     Dates: start: 20140520
  2. WARFARIN [Concomitant]
     Active Substance: WARFARIN
     Indication: THROMBOSIS PROPHYLAXIS
     Route: 048
     Dates: start: 201308, end: 201308
  3. PREDNISONE. [Concomitant]
     Active Substance: PREDNISONE
     Route: 048
     Dates: start: 20140707, end: 20140718
  4. PHENYTOIN. [Concomitant]
     Active Substance: PHENYTOIN
     Route: 048
  5. DULERA [Concomitant]
     Active Substance: FORMOTEROL FUMARATE DIHYDRATE\MOMETASONE FUROATE
     Indication: CHRONIC OBSTRUCTIVE PULMONARY DISEASE
     Route: 055
  6. WARFARIN [Concomitant]
     Active Substance: WARFARIN
     Route: 048
     Dates: start: 201308
  7. PROTONIX [Concomitant]
     Active Substance: PANTOPRAZOLE SODIUM
     Indication: GASTROOESOPHAGEAL REFLUX DISEASE
     Route: 048
     Dates: start: 20140923
  8. PHENYTOIN. [Concomitant]
     Active Substance: PHENYTOIN
     Route: 048
  9. FLOMAX [Concomitant]
     Active Substance: TAMSULOSIN HYDROCHLORIDE
     Indication: URINARY RETENTION
     Route: 048
     Dates: start: 20140923
  10. ATEZOLIZUMAB [Suspect]
     Active Substance: ATEZOLIZUMAB
     Indication: NON-SMALL CELL LUNG CANCER
     Dosage: MOST RECENT DOSE PRIOR TO THE EVENT OF TACHYPNEA : 24/JUN/2014
     Route: 042
     Dates: start: 20140624
  11. PHENYTOIN. [Concomitant]
     Active Substance: PHENYTOIN
     Route: 048
     Dates: start: 20140923
  12. CELEBREX [Concomitant]
     Active Substance: CELECOXIB
     Indication: NON-CARDIAC CHEST PAIN
     Route: 048
     Dates: start: 20140923
  13. ADVAIR HFA [Concomitant]
     Active Substance: FLUTICASONE PROPIONATE\SALMETEROL XINAFOATE
     Indication: DYSPNOEA
     Dosage: PUFF
     Route: 050
     Dates: start: 20140412, end: 20141014
  14. OXYCODONE [Concomitant]
     Active Substance: OXYCODONE
     Indication: NON-CARDIAC CHEST PAIN
     Route: 048
     Dates: start: 20140923

REACTIONS (1)
  - Tachypnoea [Recovered/Resolved]

NARRATIVE: CASE EVENT DATE: 20140702
